FAERS Safety Report 4505635-3 (Version None)
Quarter: 2004Q4

REPORT INFORMATION
  Report Type: 
  Country: None (occurrence: None)
  Receive Date: 20041119
  Receipt Date: 20020530
  Transmission Date: 20050328
  Serious: Yes (Congenital Anomaly)
  Sender: FDA-Public Use
  Company Number: ES-MERCK-0206ESP00001B1

PATIENT
  Sex: Male
  Weight: 3 kg

DRUGS (1)
  1. PROSCAR [Suspect]
     Indication: PROSTATITIS
     Dates: start: 20000101, end: 20010101

REACTIONS (10)
  - BONE DISORDER [None]
  - CONGENITAL ANOMALY [None]
  - CONGENITAL ECTOPIC BLADDER [None]
  - CRYPTORCHISM [None]
  - DRUG EXPOSURE DURING PREGNANCY [None]
  - EPISPADIAS [None]
  - INGUINAL HERNIA [None]
  - PENIS DISORDER [None]
  - PSEUDOHERMAPHRODITISM MALE [None]
  - UMBILICAL CORD ABNORMALITY [None]
